FAERS Safety Report 8179883-8 (Version None)
Quarter: 2012Q1

REPORT INFORMATION
  Report Type: 
  Country: None (occurrence: None)
  Receive Date: 20120302
  Receipt Date: 20120220
  Transmission Date: 20120608
  Serious: Yes (Other)
  Sender: FDA-Public Use
  Company Number: JP-SANOFI-AVENTIS-2012SA007575

PATIENT
  Age: 35 Year
  Sex: Male

DRUGS (19)
  1. BROMAZEPAM [Suspect]
     Dosage: REGIMEN 1
     Route: 065
     Dates: start: 20091001
  2. PREDNISOLONE [Concomitant]
     Dosage: DOSE WAS DECREASED GRADUALLY AND STOPPED
     Route: 048
     Dates: start: 20071102, end: 20090908
  3. ROHYPNOL [Suspect]
     Dosage: REGIMEN 2
     Route: 048
     Dates: start: 20090901, end: 20091001
  4. GOREI-SAN [Concomitant]
     Route: 048
     Dates: start: 19970101, end: 20071025
  5. ROHYPNOL [Suspect]
     Indication: DEPRESSION
     Dosage: REGIMEN 1
     Route: 048
     Dates: start: 19970101, end: 20071025
  6. DOGMATYL [Concomitant]
     Dates: start: 20100101
  7. HIRNAMIN [Concomitant]
     Dates: start: 20100101
  8. PHENOBARBITAL TAB [Concomitant]
     Route: 048
     Dates: start: 20070901, end: 20080125
  9. LENDORMIN [Concomitant]
     Route: 048
     Dates: start: 19970101, end: 20071025
  10. DEPAS [Suspect]
     Dosage: REGIMEN 2
     Route: 048
     Dates: start: 20090901, end: 20091001
  11. ROHYPNOL [Suspect]
     Dosage: REGIMEN 3
     Route: 048
     Dates: start: 20091001
  12. DESYREL [Concomitant]
     Dates: start: 20091001
  13. MINOCYCLINE HCL [Concomitant]
     Route: 048
     Dates: start: 19970101, end: 20071025
  14. DORAL [Suspect]
     Route: 048
     Dates: start: 20100101
  15. DEPAS [Suspect]
     Indication: DEPRESSION
     Dosage: REGIMEN 1
     Route: 048
     Dates: start: 19970101, end: 20071025
  16. MEFENAMIC ACID [Concomitant]
     Route: 048
     Dates: start: 19970101, end: 20071025
  17. ZOLPIDEM [Suspect]
     Route: 048
     Dates: start: 20091001
  18. DEPAS [Suspect]
     Dosage: REGIMEN 3
     Route: 048
     Dates: start: 20091001
  19. AMOBAN [Concomitant]
     Dates: start: 20080401

REACTIONS (2)
  - DRUG RASH WITH EOSINOPHILIA AND SYSTEMIC SYMPTOMS [None]
  - CONDITION AGGRAVATED [None]
